FAERS Safety Report 24123761 (Version 1)
Quarter: 2024Q3

REPORT INFORMATION
  Report Type: Spontaneous
  Country: US (occurrence: US)
  Receive Date: 20240723
  Receipt Date: 20240723
  Transmission Date: 20241016
  Serious: Yes (Hospitalization)
  Sender: OTSUKA
  Company Number: US-OTSUKA-2023_028511

PATIENT
  Age: 62 Year
  Sex: Female
  Weight: 69.85 kg

DRUGS (2)
  1. REXULTI [Suspect]
     Active Substance: BREXPIPRAZOLE
     Indication: Product used for unknown indication
     Dosage: UNK
     Route: 065
     Dates: start: 202309
  2. XANAX [Suspect]
     Active Substance: ALPRAZOLAM
     Indication: Product used for unknown indication
     Dosage: ONE IN THE MORNING AND AT NIGHT IF I NEEDED IT
     Route: 065

REACTIONS (13)
  - Blood glucose increased [Unknown]
  - Polydipsia [Unknown]
  - Confusional state [Unknown]
  - Dysphemia [Unknown]
  - Memory impairment [Unknown]
  - Blood magnesium decreased [Unknown]
  - Blood potassium decreased [Unknown]
  - Fall [Unknown]
  - Agitation [Unknown]
  - Asthenia [Unknown]
  - Fatigue [Unknown]
  - Urinary tract infection [Unknown]
  - Dizziness [Unknown]

NARRATIVE: CASE EVENT DATE: 20231030
